FAERS Safety Report 4426622-X (Version None)
Quarter: 2004Q3

REPORT INFORMATION
  Report Type: 
  Country: None (occurrence: None)
  Receive Date: 20040812
  Receipt Date: 20040812
  Transmission Date: 20050211
  Serious: Yes (Hospitalization, Other)
  Sender: FDA-Public Use
  Company Number: None

PATIENT
  Age: 56 Year
  Sex: Male
  Weight: 86.7 kg

DRUGS (7)
  1. INTEGRILIN [Suspect]
     Indication: ANTIPLATELET THERAPY
     Dosage: 2(7.9 ML BOLUSES) 14ML/HR IV
     Route: 042
     Dates: start: 20040809
  2. MIDAZOLAM [Concomitant]
  3. FENTANYL [Concomitant]
  4. NITROGLYCERIN [Concomitant]
  5. ASPIRIN [Concomitant]
  6. PEPCID [Concomitant]
  7. CLOPIDOGREL [Concomitant]

REACTIONS (2)
  - POSTOPERATIVE WOUND COMPLICATION [None]
  - WOUND SECRETION [None]
